FAERS Safety Report 7862626-2 (Version None)
Quarter: 2011Q4

REPORT INFORMATION
  Report Type: 
  Country: None (occurrence: None)
  Receive Date: 20111027
  Receipt Date: 20101110
  Transmission Date: 20120403
  Serious: No
  Sender: FDA-Public Use
  Company Number: US-AMGEN-USASP2010004724

PATIENT
  Age: 79 Year
  Sex: Female

DRUGS (2)
  1. METHOTREXATE [Concomitant]
  2. ENBREL [Suspect]
     Indication: RHEUMATOID ARTHRITIS
     Dates: start: 20100910

REACTIONS (9)
  - RHEUMATOID ARTHRITIS [None]
  - CYSTITIS [None]
  - MYALGIA [None]
  - INJECTION SITE ERYTHEMA [None]
  - NAUSEA [None]
  - INJECTION SITE PRURITUS [None]
  - HIATUS HERNIA [None]
  - DIVERTICULITIS [None]
  - INJECTION SITE SWELLING [None]
